FAERS Safety Report 8720457 (Version 2)
Quarter: 2018Q2

REPORT INFORMATION
  Report Type: Report from Study
  Country: ZA (occurrence: ZA)
  Receive Date: 20120813
  Receipt Date: 20180613
  Transmission Date: 20180711
  Serious: Yes (Death, Hospitalization, Other)
  Sender: FDA-Public Use
  Company Number: ZA-ROCHE-1093246

PATIENT
  Age: 45 Year
  Sex: Female

DRUGS (7)
  1. COSMOFER [Concomitant]
     Active Substance: IRON DEXTRAN
  2. MIRCERA [Suspect]
     Active Substance: METHOXY POLYETHYLENE GLYCOL-EPOETIN BETA
     Indication: NEPHROGENIC ANAEMIA
     Route: 058
     Dates: start: 20100623
  3. MIRCERA [Suspect]
     Active Substance: METHOXY POLYETHYLENE GLYCOL-EPOETIN BETA
     Route: 065
  4. EPOETIN BETA [Suspect]
     Active Substance: ERYTHROPOIETIN
     Indication: NEPHROGENIC ANAEMIA
     Route: 058
     Dates: start: 20080522
  5. EPOETIN BETA [Suspect]
     Active Substance: ERYTHROPOIETIN
     Dosage: /JUL/2012
     Route: 058
  6. EPOETIN BETA [Suspect]
     Active Substance: ERYTHROPOIETIN
     Route: 058
     Dates: start: 201003
  7. FOLIC ACID. [Concomitant]
     Active Substance: FOLIC ACID

REACTIONS (10)
  - Drug dose omission [Unknown]
  - Haemoglobin decreased [Unknown]
  - Embolism [Unknown]
  - Post procedural haemorrhage [Unknown]
  - Hip arthroplasty [Unknown]
  - Death [Fatal]
  - Infection [Unknown]
  - Insertion of ambulatory peritoneal catheter [Unknown]
  - Transplant [Unknown]
  - Arthritis [Unknown]

NARRATIVE: CASE EVENT DATE: 200811
